FAERS Safety Report 7921723-3 (Version None)
Quarter: 2011Q4

REPORT INFORMATION
  Report Type: 
  Country: None (occurrence: None)
  Receive Date: 20111117
  Receipt Date: 20111110
  Transmission Date: 20120403
  Serious: Yes (Other)
  Sender: FDA-Public Use
  Company Number: US-GLAXOSMITHKLINE-A0951446A

PATIENT
  Age: 77 Year
  Sex: Female

DRUGS (2)
  1. PROMACTA [Suspect]
     Indication: IDIOPATHIC THROMBOCYTOPENIC PURPURA
     Dosage: 25MG PER DAY
     Dates: start: 20100623, end: 20110817
  2. NO CONCURRENT MEDICATIONS [Concomitant]

REACTIONS (5)
  - HEPATIC CIRRHOSIS [None]
  - THROMBOCYTOSIS [None]
  - OEDEMA PERIPHERAL [None]
  - ASCITES [None]
  - OEDEMA [None]
